FAERS Safety Report 9366049 (Version 2)
Quarter: 2013Q2

REPORT INFORMATION
  Report Type: Spontaneous
  Country: JP (occurrence: JP)
  Receive Date: 20130625
  Receipt Date: 20130625
  Transmission Date: 20140414
  Serious: Yes (Hospitalization)
  Sender: FDA-Public Use
  Company Number: JP-NOVOPROD-367955

PATIENT
  Age: 80 Year
  Sex: Male

DRUGS (26)
  1. NOVOLIN R CHU FLEXPEN [Suspect]
     Indication: TYPE 2 DIABETES MELLITUS
     Dosage: UNK
     Route: 065
     Dates: start: 20121124, end: 20121212
  2. NOVOLIN N CHU FLEXPEN [Suspect]
     Indication: TYPE 2 DIABETES MELLITUS
     Dosage: UNK
     Route: 058
     Dates: start: 20121124, end: 20121209
  3. LEVEMIR CHU FLEXPEN [Suspect]
     Indication: TYPE 2 DIABETES MELLITUS
     Dosage: UNK
     Route: 058
     Dates: start: 20121213, end: 20121214
  4. SUREPOST [Suspect]
     Indication: TYPE 2 DIABETES MELLITUS
     Dosage: 0.75 MG, QD
     Route: 048
     Dates: start: 20121203, end: 20121207
  5. SUREPOST [Suspect]
     Dosage: 1.5 MG, QD
     Route: 048
     Dates: start: 20121208, end: 20121213
  6. SUREPOST [Suspect]
     Dosage: 3.0 MG, QD
     Route: 048
     Dates: start: 20121214, end: 20121217
  7. METGLUCO [Concomitant]
     Indication: TYPE 2 DIABETES MELLITUS
     Dosage: 750 MG, QD
     Route: 048
     Dates: start: 20091026, end: 20121129
  8. ACTOS [Concomitant]
     Indication: TYPE 2 DIABETES MELLITUS
     Dosage: 15 MG, QD
     Route: 048
     Dates: start: 20100514, end: 20121205
  9. MUCOSTA [Concomitant]
     Indication: DUODENAL ULCER
     Dosage: 300 MG, QD
     Route: 048
     Dates: start: 20100611
  10. MAGMITT [Concomitant]
     Indication: CONSTIPATION
     Dosage: 990 MG, QD
     Route: 048
     Dates: start: 20100928
  11. MAGMITT [Concomitant]
     Dosage: 1980 MG, QD
     Dates: start: 20121213
  12. JANUVIA [Concomitant]
     Indication: TYPE 2 DIABETES MELLITUS
     Dosage: 100 MG, QD
     Route: 048
     Dates: start: 20110114, end: 20121127
  13. GLIMICRON [Concomitant]
     Indication: TYPE 2 DIABETES MELLITUS
     Dosage: 20 MG, QD
     Route: 048
     Dates: start: 20110816, end: 20120125
  14. GRAMALIL [Concomitant]
     Indication: ALCOHOL INDUCED PERSISTING DEMENTIA
     Dosage: 25 MG, QD
     Route: 048
     Dates: start: 20111220
  15. GRAMALIL [Concomitant]
     Indication: CRANIAL NERVE INJURY
  16. HALCION [Concomitant]
     Indication: INSOMNIA
     Dosage: 0.25 MG, QD
     Route: 048
     Dates: start: 20120522
  17. EQUA [Concomitant]
     Indication: TYPE 2 DIABETES MELLITUS
     Dosage: 50 MG, QD
     Route: 048
     Dates: start: 20121128
  18. EQUA [Concomitant]
     Dosage: 100 MG, QD
     Route: 048
     Dates: end: 20121213
  19. MEMARY [Concomitant]
     Indication: DEMENTIA ALZHEIMER^S TYPE
     Dosage: 5 MG, QD
     Route: 048
     Dates: start: 20121129, end: 20121207
  20. MEMARY [Concomitant]
     Dosage: 10 MG, QD
     Route: 048
     Dates: start: 20121207
  21. GLUCOBAY [Concomitant]
     Indication: TYPE 2 DIABETES MELLITUS
     Dosage: 150 MG, QD
     Route: 048
     Dates: start: 20121130
  22. GLUCOBAY [Concomitant]
     Dosage: 300 MG, QD
     Route: 048
     Dates: start: 20121218
  23. VICTOZA HIKACHU INJECTION [Concomitant]
     Indication: TYPE 2 DIABETES MELLITUS
     Dosage: 0.3 MG, QD
     Route: 058
     Dates: start: 20121215
  24. VICTOZA HIKACHU INJECTION [Concomitant]
     Dosage: 0.6 MG, QD
     Route: 058
     Dates: start: 20121218
  25. VICTOZA HIKACHU INJECTION [Concomitant]
     Dosage: 0.9 MG, QD
     Route: 058
     Dates: start: 20121221
  26. GLUFAST [Concomitant]
     Indication: TYPE 2 DIABETES MELLITUS
     Dosage: Q30 MG, QD
     Route: 048
     Dates: start: 20121217

REACTIONS (4)
  - Hepatic function abnormal [Recovered/Resolved]
  - Aspartate aminotransferase increased [None]
  - Alanine aminotransferase increased [None]
  - Blood lactate dehydrogenase increased [None]
